FAERS Safety Report 7639778-2 (Version None)
Quarter: 2011Q3

REPORT INFORMATION
  Report Type: 
  Country: None (occurrence: None)
  Receive Date: 20110727
  Receipt Date: 20110718
  Transmission Date: 20111222
  Serious: Yes (Other)
  Sender: FDA-Public Use
  Company Number: PHHY2011DK38838

PATIENT
  Age: 14 Year
  Sex: Female

DRUGS (1)
  1. EXJADE [Suspect]

REACTIONS (1)
  - LIVER DISORDER [None]
